FAERS Safety Report 25922649 (Version 1)
Quarter: 2025Q4

REPORT INFORMATION
  Report Type: Spontaneous
  Country: US (occurrence: US)
  Receive Date: 20251015
  Receipt Date: 20251015
  Transmission Date: 20260118
  Serious: No
  Sender: MERCK SHARP & DOHME LLC
  Company Number: US-009507513-2337883

PATIENT
  Sex: Male

DRUGS (4)
  1. KEYTRUDA [Suspect]
     Active Substance: PEMBROLIZUMAB
     Indication: Lung carcinoma cell type unspecified stage IV
     Route: 042
     Dates: start: 202503
  2. CARVEDILOL [Concomitant]
     Active Substance: CARVEDILOL
  3. LOVASTATIN [Concomitant]
     Active Substance: LOVASTATIN
  4. TRULICITY [Concomitant]
     Active Substance: DULAGLUTIDE

REACTIONS (3)
  - Abdominal pain upper [Recovering/Resolving]
  - Feeling abnormal [Recovering/Resolving]
  - Full blood count decreased [Recovering/Resolving]
